FAERS Safety Report 7166230-3 (Version None)
Quarter: 2010Q4

REPORT INFORMATION
  Report Type: 
  Country: None (occurrence: None)
  Receive Date: 20101216
  Receipt Date: 20101206
  Transmission Date: 20110411
  Serious: Yes (Hospitalization)
  Sender: FDA-Public Use
  Company Number: US-CELGENEUS-163-21880-10111829

PATIENT
  Sex: Female

DRUGS (3)
  1. REVLIMID [Suspect]
     Indication: MULTIPLE MYELOMA
     Route: 048
     Dates: start: 20070501
  2. REVLIMID [Suspect]
     Route: 048
     Dates: start: 20090601, end: 20100501
  3. REVLIMID [Suspect]
     Route: 048
     Dates: start: 20100501, end: 20101020

REACTIONS (1)
  - PNEUMONIA [None]
